FAERS Safety Report 11090603 (Version 2)
Quarter: 2015Q2

REPORT INFORMATION
  Report Type: Spontaneous
  Country: US (occurrence: US)
  Receive Date: 20150505
  Receipt Date: 20150506
  Transmission Date: 20150821
  Serious: Yes (Hospitalization, Other)
  Sender: FDA-Public Use
  Company Number: US-ABBVIE-15K-163-1383654-00

PATIENT
  Sex: Male
  Weight: 66.28 kg

DRUGS (4)
  1. HUMIRA [Suspect]
     Active Substance: ADALIMUMAB
     Indication: CROHN^S DISEASE
     Route: 058
     Dates: start: 201306, end: 2014
  2. MEROPENEM. [Suspect]
     Active Substance: MEROPENEM
     Indication: LOCALISED INFECTION
     Route: 042
     Dates: start: 20150226
  3. DILANTIN [Suspect]
     Active Substance: PHENYTOIN
     Indication: SEIZURE
     Route: 065
     Dates: start: 201406
  4. KEPPRA [Suspect]
     Active Substance: LEVETIRACETAM
     Indication: SEIZURE
     Route: 065
     Dates: start: 201406

REACTIONS (17)
  - Posterior reversible encephalopathy syndrome [Recovered/Resolved]
  - Gastrointestinal fistula [Not Recovered/Not Resolved]
  - Surgery [Unknown]
  - Localised infection [Unknown]
  - Chills [Recovered/Resolved]
  - Weight decreased [Unknown]
  - Blood pressure increased [Unknown]
  - Vomiting [Recovered/Resolved]
  - Pancreatitis [Recovered/Resolved]
  - Abdominal abscess [Not Recovered/Not Resolved]
  - Surgery [Unknown]
  - Drug ineffective [Not Recovered/Not Resolved]
  - Diverticulitis [Unknown]
  - Malnutrition [Unknown]
  - Adverse drug reaction [Unknown]
  - Seizure [Recovered/Resolved]
  - Iron deficiency [Unknown]

NARRATIVE: CASE EVENT DATE: 2013
